FAERS Safety Report 5739270-6 (Version None)
Quarter: 2008Q2

REPORT INFORMATION
  Report Type: 
  Country: None (occurrence: None)
  Receive Date: 20080515
  Receipt Date: 20080508
  Transmission Date: 20081010
  Serious: Yes (Hospitalization)
  Sender: FDA-Public Use
  Company Number: JP-BRISTOL-MYERS SQUIBB COMPANY-14191324

PATIENT
  Age: 64 Year
  Sex: Male

DRUGS (5)
  1. MEVALOTIN [Suspect]
     Route: 065
     Dates: start: 20080220
  2. SELBEX [Concomitant]
     Dates: start: 20040101, end: 20050101
  3. RHEUMATREX [Concomitant]
     Dates: start: 20040101, end: 20050101
  4. FOLIAMIN [Concomitant]
     Dates: start: 20040101, end: 20050101
  5. FAMOTIDINE [Concomitant]
     Dates: start: 20040101, end: 20050101

REACTIONS (3)
  - ALANINE AMINOTRANSFERASE INCREASED [None]
  - ASPARTATE AMINOTRANSFERASE INCREASED [None]
  - C-REACTIVE PROTEIN INCREASED [None]
